FAERS Safety Report 10555577 (Version 8)
Quarter: 2015Q4

REPORT INFORMATION
  Report Type: Spontaneous
  Country: US (occurrence: US)
  Receive Date: 20141030
  Receipt Date: 20151106
  Transmission Date: 20160304
  Serious: Yes (Other)
  Sender: FDA-Public Use
  Company Number: US-009507513-1410USA015401

PATIENT
  Sex: Female
  Weight: 55.33 kg

DRUGS (8)
  1. FOSAMAX [Suspect]
     Active Substance: ALENDRONATE SODIUM
     Indication: OSTEOPOROSIS
     Dosage: 70 MG, QW
     Route: 048
     Dates: start: 20010731, end: 200802
  2. ALENDRONATE SODIUM. [Suspect]
     Active Substance: ALENDRONATE SODIUM
     Indication: OSTEOPENIA
     Dosage: 70 MG, QW
     Route: 048
     Dates: start: 20100827
  3. FOSAMAX [Suspect]
     Active Substance: ALENDRONATE SODIUM
     Indication: OSTEOPENIA
     Dosage: 10 MG, QW
     Route: 048
     Dates: start: 200001, end: 200201
  4. ALENDRONATE SODIUM. [Suspect]
     Active Substance: ALENDRONATE SODIUM
     Indication: OSTEOPENIA
     Dosage: 70 MG, QW
     Route: 048
     Dates: start: 20080227, end: 201005
  5. ALENDRONATE SODIUM. [Suspect]
     Active Substance: ALENDRONATE SODIUM
     Indication: OSTEOPOROSIS
  6. ALENDRONATE SODIUM. [Suspect]
     Active Substance: ALENDRONATE SODIUM
     Indication: OSTEOPOROSIS
  7. ALENDRONATE SODIUM. [Suspect]
     Active Substance: ALENDRONATE SODIUM
     Indication: OSTEOPENIA
     Dosage: 70 MG, QW
     Route: 048
     Dates: start: 20101122, end: 201109
  8. ALENDRONATE SODIUM. [Suspect]
     Active Substance: ALENDRONATE SODIUM
     Indication: OSTEOPOROSIS

REACTIONS (17)
  - Inappropriate schedule of drug administration [Unknown]
  - Normochromic normocytic anaemia [Unknown]
  - Vitamin D deficiency [Unknown]
  - Hysterosalpingo-oophorectomy [Unknown]
  - Increased tendency to bruise [Unknown]
  - Ultrasound thyroid abnormal [Unknown]
  - Femur fracture [Unknown]
  - Blood cholesterol abnormal [Unknown]
  - Osteoarthritis [Unknown]
  - Uterine prolapse [Unknown]
  - Impaired healing [Unknown]
  - Femur fracture [Unknown]
  - Bone scan abnormal [Unknown]
  - Bone scan abnormal [Unknown]
  - Goitre [Unknown]
  - Artificial menopause [Unknown]
  - Sinus disorder [Unknown]

NARRATIVE: CASE EVENT DATE: 200001
